FAERS Safety Report 20988133 (Version 1)
Quarter: 2022Q2

REPORT INFORMATION
  Report Type: Spontaneous
  Country: US (occurrence: None)
  Receive Date: 20220620
  Receipt Date: 20220620
  Transmission Date: 20220720
  Serious: No
  Sender: FDA-Public Use
  Company Number: None

PATIENT
  Age: 72 Year
  Sex: Male

DRUGS (1)
  1. PRALUENT [Suspect]
     Active Substance: ALIROCUMAB
     Indication: Hyperlipidaemia
     Dosage: 150MG Q 2 WEEKS SQ?
     Route: 058
     Dates: start: 20211207

REACTIONS (7)
  - Arthralgia [None]
  - Back pain [None]
  - Pollakiuria [None]
  - Rhinorrhoea [None]
  - Heart rate irregular [None]
  - Therapy cessation [None]
  - Anxiety [None]
